FAERS Safety Report 9753227 (Version 2)
Quarter: 2015Q3

REPORT INFORMATION
  Report Type: Spontaneous
  Country: US (occurrence: US)
  Receive Date: 20131213
  Receipt Date: 20150805
  Transmission Date: 20151125
  Serious: No
  Sender: FDA-Public Use
  Company Number: US-GILEAD-2010-0027635

PATIENT
  Age: 66 Year
  Sex: Female
  Weight: 98.88 kg

DRUGS (17)
  1. LETAIRIS [Suspect]
     Active Substance: AMBRISENTAN
     Indication: PULMONARY ARTERIAL HYPERTENSION
     Route: 048
     Dates: start: 20091209
  2. SPIRIVA [Concomitant]
     Active Substance: TIOTROPIUM BROMIDE MONOHYDRATE
  3. ASTELIN [Concomitant]
     Active Substance: AZELASTINE HYDROCHLORIDE
  4. POTASSIUM CHLORIDE. [Concomitant]
     Active Substance: POTASSIUM CHLORIDE
  5. ZOCOR [Concomitant]
     Active Substance: SIMVASTATIN
  6. PREDNISONE. [Concomitant]
     Active Substance: PREDNISONE
  7. LASIX [Concomitant]
     Active Substance: FUROSEMIDE
  8. INDAPAMIDE. [Concomitant]
     Active Substance: INDAPAMIDE
  9. PRILOSEC [Concomitant]
     Active Substance: OMEPRAZOLE MAGNESIUM
  10. NOVOLOG [Concomitant]
     Active Substance: INSULIN ASPART
  11. SULFAMETHOXAZOLE [Concomitant]
     Active Substance: SULFAMETHOXAZOLE
  12. ACEON [Concomitant]
     Active Substance: PERINDOPRIL ERBUMINE
  13. MULTIVITAMIN [Concomitant]
     Active Substance: VITAMINS
  14. CALCIUM +D [Concomitant]
     Active Substance: CALCIUM\VITAMIN D
  15. TRAVATAN [Concomitant]
     Active Substance: TRAVOPROST
  16. LANTUS [Concomitant]
     Active Substance: INSULIN GLARGINE
  17. ALPHAGAN P [Concomitant]
     Active Substance: BRIMONIDINE TARTRATE

REACTIONS (1)
  - Nasal dryness [Unknown]
